FAERS Safety Report 17093688 (Version 2)
Quarter: 2019Q4

REPORT INFORMATION
  Report Type: Spontaneous
  Country: CN (occurrence: CN)
  Receive Date: 20191129
  Receipt Date: 20191205
  Transmission Date: 20200122
  Serious: Yes (Hospitalization)
  Sender: FDA-Public Use
  Company Number: CN-ASTRAZENECA-2019SF67207

PATIENT
  Age: 7 Year
  Sex: Male
  Weight: 21 kg

DRUGS (1)
  1. PULMICORT RESPULES [Suspect]
     Active Substance: BUDESONIDE
     Indication: ALLERGIC COUGH
     Dosage: 2ML 1MG, ONCE IN THE MORNING, ONCE IN THE EVENING, 1 TUBE FOR EACH TIME
     Route: 055
     Dates: start: 2015

REACTIONS (5)
  - Device issue [Recovered/Resolved]
  - Cough [Recovered/Resolved]
  - Product odour abnormal [Recovered/Resolved]
  - Condition aggravated [Recovered/Resolved]
  - Pneumonia bacterial [Recovered/Resolved]

NARRATIVE: CASE EVENT DATE: 20191101
